FAERS Safety Report 8744249 (Version 2)
Quarter: 2012Q4

REPORT INFORMATION
  Report Type: 
  Country: US (occurrence: US)
  Receive Date: 20120824
  Receipt Date: 20120913
  Transmission Date: 20130627
  Serious: Yes (Other)
  Sender: FDA-Public Use
  Company Number: CHPA2012US018395

PATIENT
  Age: 37 Year
  Sex: Female

DRUGS (4)
  1. VOLTAREN GEL [Suspect]
     Indication: INFLAMMATION
     Dosage: 4 g, BID
     Route: 061
     Dates: start: 2011, end: 201208
  2. CARISOPRODOL [Concomitant]
     Indication: INJURY
     Dosage: 350 mg, QID
  3. ANXIOLYTICS [Concomitant]
     Indication: ANXIETY
  4. ANALGESICS,OTHER [Concomitant]
     Indication: PAIN

REACTIONS (10)
  - Chronic obstructive pulmonary disease [Unknown]
  - Bronchitis chronic [Unknown]
  - Emphysema [Unknown]
  - Off label use [Unknown]
  - Therapeutic response unexpected [Unknown]
  - Expired drug administered [Unknown]
  - Drug administered at inappropriate site [Unknown]
  - Wrong technique in drug usage process [Unknown]
  - Product quality issue [None]
  - Product label issue [None]
